FAERS Safety Report 24209924 (Version 3)
Quarter: 2024Q4

REPORT INFORMATION
  Report Type: Spontaneous
  Country: FR (occurrence: FR)
  Receive Date: 20240814
  Receipt Date: 20241007
  Transmission Date: 20250115
  Serious: Yes (Other)
  Sender: SANDOZ
  Company Number: None

PATIENT
  Age: 71 Year
  Sex: Female
  Weight: 65 kg

DRUGS (14)
  1. ALPRAZOLAM [Suspect]
     Active Substance: ALPRAZOLAM
     Indication: Mixed anxiety and depressive disorder
     Dosage: 0.25 MG, QD
     Route: 048
  2. AZELASTINE [Suspect]
     Active Substance: AZELASTINE
     Indication: Hypersensitivity
     Dosage: 2 DOSAGE FORM, QD
     Route: 048
  3. BACTRIM [Suspect]
     Active Substance: SULFAMETHOXAZOLE\TRIMETHOPRIM
     Indication: Antifungal prophylaxis
     Dosage: 3 DOSAGE FORM, QWK
     Route: 048
     Dates: start: 202111, end: 20220810
  4. BRUKINSA [Suspect]
     Active Substance: ZANUBRUTINIB
     Indication: Mantle cell lymphoma
     Dosage: 320 MG, QD
     Route: 048
     Dates: start: 20211129, end: 20220822
  5. LANSOPRAZOLE [Suspect]
     Active Substance: LANSOPRAZOLE
     Indication: Prophylaxis
     Dosage: 15 MG, QD (DATE OF MOST RECENT DOSE: OCT/2022 )
     Route: 048
  6. PAROXETINE [Suspect]
     Active Substance: PAROXETINE
     Indication: Mixed anxiety and depressive disorder
     Dosage: 20 MG, QD
     Route: 048
  7. PROPRANOLOL [Suspect]
     Active Substance: PROPRANOLOL HYDROCHLORIDE
     Indication: Hypertension
     Dosage: 20 MILLIGRAM, QD
     Route: 048
  8. RITUXIMAB [Suspect]
     Active Substance: RITUXIMAB
     Indication: Mantle cell lymphoma
     Dosage: 640 MG, QMO
     Route: 042
     Dates: start: 20211119
  9. RITUXIMAB [Suspect]
     Active Substance: RITUXIMAB
     Dosage: 640 MG, QMO
     Route: 042
     Dates: start: 20211129, end: 202206
  10. RITUXIMAB [Suspect]
     Active Substance: RITUXIMAB
     Indication: Mantle cell lymphoma
     Dosage: 640.000MG
     Route: 042
     Dates: start: 20211129, end: 202206
  11. RITUXIMAB [Suspect]
     Active Substance: RITUXIMAB
     Dosage: 640.000MG
     Route: 042
     Dates: start: 20211119
  12. TRIMEBUTINE [Suspect]
     Active Substance: TRIMEBUTINE
     Indication: Constipation
     Dosage: 400 MG, QD (200MG 2/JR)
     Route: 048
     Dates: start: 202204, end: 20220822
  13. VALACYCLOVIR HYDROCHLORIDE [Suspect]
     Active Substance: VALACYCLOVIR HYDROCHLORIDE
     Indication: Antiviral prophylaxis
     Dosage: 1000 MG, QD
     Route: 048
     Dates: start: 202111, end: 20220810
  14. Alprim [Concomitant]
     Indication: Antifungal prophylaxis
     Dosage: 3 DOSAGE FORM, QWK
     Route: 048
     Dates: start: 202111, end: 20220810

REACTIONS (1)
  - Diarrhoea [Recovered/Resolved]

NARRATIVE: CASE EVENT DATE: 20220502
